FAERS Safety Report 18026137 (Version 2)
Quarter: 2020Q3

REPORT INFORMATION
  Report Type: Report from Study
  Country: US (occurrence: US)
  Receive Date: 20200715
  Receipt Date: 20200818
  Transmission Date: 20201103
  Serious: Yes (Other)
  Sender: FDA-Public Use
  Company Number: US-PFIZER INC-2020199507

PATIENT
  Age: 64 Year
  Sex: Female

DRUGS (2)
  1. SUTENT [Suspect]
     Active Substance: SUNITINIB MALATE
     Dosage: 37.5 MG, DAILY (4 WEEKS ON, 2 WEEKS OFF)
     Route: 048
     Dates: start: 20200728
  2. SUTENT [Suspect]
     Active Substance: SUNITINIB MALATE
     Indication: RENAL CELL CARCINOMA
     Dosage: 50 MG, CYCLIC (4 WEEKS ON, 2 WEEKS OFF)
     Route: 048
     Dates: start: 20200511, end: 20200622

REACTIONS (21)
  - Dysgeusia [Recovering/Resolving]
  - Dysgeusia [Unknown]
  - Urinary tract infection [Recovered/Resolved]
  - Myelosuppression [Unknown]
  - Oropharyngeal pain [Unknown]
  - Abscess oral [Unknown]
  - Alopecia [Unknown]
  - Dysuria [Recovered/Resolved]
  - Tongue erythema [Recovering/Resolving]
  - Glossodynia [Recovering/Resolving]
  - Hypertension [Recovering/Resolving]
  - Ageusia [Unknown]
  - Dry mouth [Unknown]
  - Chromaturia [Not Recovered/Not Resolved]
  - Nausea [Recovering/Resolving]
  - Thrombocytopenia [Unknown]
  - Fatigue [Recovering/Resolving]
  - Contusion [Unknown]
  - Gingival bleeding [Unknown]
  - Chapped lips [Unknown]
  - Micturition disorder [Unknown]

NARRATIVE: CASE EVENT DATE: 2020
